FAERS Safety Report 20167976 (Version 9)
Quarter: 2022Q4

REPORT INFORMATION
  Report Type: Spontaneous
  Country: US (occurrence: US)
  Receive Date: 20211210
  Receipt Date: 20221117
  Transmission Date: 20230113
  Serious: Yes (Other)
  Sender: FDA-Public Use
  Company Number: US-BIOVITRUM-2021US10558

PATIENT
  Age: 56 Year
  Sex: Male

DRUGS (5)
  1. KINERET [Suspect]
     Active Substance: ANAKINRA
     Indication: Pyrexia
     Dates: start: 20191229
  2. KINERET [Suspect]
     Active Substance: ANAKINRA
     Dates: start: 20190406
  3. KINERET [Suspect]
     Active Substance: ANAKINRA
     Dates: start: 20190309
  4. KINERET [Suspect]
     Active Substance: ANAKINRA
     Dates: start: 201904
  5. KINERET [Suspect]
     Active Substance: ANAKINRA
     Dates: start: 20190410

REACTIONS (13)
  - Lyme disease [Recovering/Resolving]
  - Pyrexia [Unknown]
  - Condition aggravated [Unknown]
  - Pyrexia [Unknown]
  - Viral upper respiratory tract infection [Not Recovered/Not Resolved]
  - Sciatica [Unknown]
  - Intervertebral disc protrusion [Unknown]
  - Compression fracture [Unknown]
  - Muscle strain [Unknown]
  - Arthralgia [Unknown]
  - Rash [Unknown]
  - Product administration error [Unknown]
  - Off label use [Unknown]

NARRATIVE: CASE EVENT DATE: 20190406
